FAERS Safety Report 10219365 (Version 2)
Quarter: 2014Q2

REPORT INFORMATION
  Report Type: Report from Study
  Country: DE (occurrence: IL)
  Receive Date: 20140605
  Receipt Date: 20140605
  Transmission Date: 20141212
  Serious: Yes (Death, Hospitalization)
  Sender: FDA-Public Use
  Company Number: DE-ACTELION-A-US2014-97217

PATIENT
  Sex: Female

DRUGS (2)
  1. VENTAVIS [Suspect]
     Indication: PULMONARY HYPERTENSION
     Dosage: UNK
     Route: 055
     Dates: start: 20030901, end: 201405
  2. FUSID [Suspect]
     Indication: CARDIAC FAILURE CONGESTIVE

REACTIONS (3)
  - Renal failure acute [Fatal]
  - Thrombocytopenia [Unknown]
  - Pneumonia [Unknown]
